FAERS Safety Report 8786427 (Version 2)
Quarter: 2012Q4

REPORT INFORMATION
  Report Type: 
  Country: US (occurrence: US)
  Receive Date: 20120914
  Receipt Date: 20121002
  Transmission Date: 20130627
  Serious: Yes (Death, Other)
  Sender: FDA-Public Use
  Company Number: US-PFIZER INC-2012225699

PATIENT

DRUGS (1)
  1. NORVASC [Suspect]
     Dosage: 5 mg, UNK
     Dates: start: 20120510, end: 20120901

REACTIONS (1)
  - Death [Fatal]
